FAERS Safety Report 21169971 (Version 3)
Quarter: 2022Q4

REPORT INFORMATION
  Report Type: Report from Study
  Country: BR (occurrence: BR)
  Receive Date: 20220804
  Receipt Date: 20221112
  Transmission Date: 20230113
  Serious: No
  Sender: FDA-Public Use
  Company Number: BR-CELLTRION INC.-2022BR012275

PATIENT

DRUGS (2)
  1. TRUXIMA [Suspect]
     Active Substance: RITUXIMAB-ABBS
     Indication: Polymyositis
     Dosage: 750 MG (EVERY 15 DAYS AND THEN 6 MONTHS AGAIN)
     Route: 042
     Dates: start: 20220912, end: 20220912
  2. TRUXIMA [Suspect]
     Active Substance: RITUXIMAB-ABBS
     Indication: Necrotising myositis
     Dosage: 750 MG (EVERY 15 DAYS AND THEN 6 MONTHS AGAIN)
     Route: 042
     Dates: start: 20220927

REACTIONS (1)
  - Off label use [Unknown]
